FAERS Safety Report 15618684 (Version 1)
Quarter: 2018Q4

REPORT INFORMATION
  Report Type: Spontaneous
  Country: US (occurrence: US)
  Receive Date: 20181114
  Receipt Date: 20181114
  Transmission Date: 20190205
  Serious: Yes (Hospitalization, Other)
  Sender: FDA-Public Use
  Company Number: US-SHIRE-US201842890

PATIENT
  Sex: Male
  Weight: 80.73 kg

DRUGS (1)
  1. CARBATROL [Suspect]
     Active Substance: CARBAMAZEPINE
     Indication: EPILEPSY
     Dosage: 300 MG, 2X/DAY:BID
     Route: 048

REACTIONS (9)
  - Hypoaesthesia [Unknown]
  - Rash [Unknown]
  - Abdominal pain [Unknown]
  - Constipation [Unknown]
  - Cerebrovascular accident [Unknown]
  - Dehydration [Unknown]
  - Back injury [Unknown]
  - Fear [Unknown]
  - Disturbance in attention [Unknown]
